FAERS Safety Report 9841380 (Version 4)
Quarter: 2014Q3

REPORT INFORMATION
  Report Type: Spontaneous
  Country: US (occurrence: US)
  Receive Date: 20140124
  Receipt Date: 20140926
  Transmission Date: 20150326
  Serious: Yes (Hospitalization, Other)
  Sender: FDA-Public Use
  Company Number: US-BAYER-2014-012763

PATIENT
  Age: 64 Year
  Sex: Male
  Weight: 77.1 kg

DRUGS (14)
  1. PIPERACILLIN AND TAZOBACTAM [Concomitant]
     Active Substance: PIPERACILLIN SODIUM\TAZOBACTAM SODIUM
     Dosage: 3.375 G, QID
     Route: 042
  2. SENNA [Concomitant]
     Active Substance: SENNA LEAF\SENNOSIDES\SENNOSIDES A AND B
     Dosage: 2 DF, HS
     Route: 048
  3. PNEUMOCOCCAL VACCINE [Concomitant]
     Active Substance: PNEUMOCOCCAL VACCINE POLYVALENT
  4. ALEVE [Suspect]
     Active Substance: NAPROXEN SODIUM
     Indication: ARTHRITIS
     Dosage: UNK, PRN
     Route: 048
     Dates: start: 201303, end: 20131119
  5. SODIUM CHLORIDE. [Concomitant]
     Active Substance: SODIUM CHLORIDE
     Dosage: 1000 ML, ONCE
     Route: 042
  6. PANTOPRAZOLE [Concomitant]
     Active Substance: PANTOPRAZOLE SODIUM
     Dosage: 40 MG, ONCE
     Route: 048
  7. ALEVE [Suspect]
     Active Substance: NAPROXEN SODIUM
     Indication: ANALGESIC THERAPY
  8. BAYER GENUINE ASPIRIN [Suspect]
     Active Substance: ASPIRIN
     Indication: ANALGESIC THERAPY
     Dosage: UNK UNK, PRN
     Route: 048
  9. LACTATED RINGERS [Concomitant]
     Active Substance: CALCIUM CHLORIDE\POTASSIUM CHLORIDE\SODIUM CHLORIDE\SODIUM LACTATE
     Dosage: 1000 ML, ONCE
     Route: 042
  10. VANCOMYCIN [Concomitant]
     Active Substance: VANCOMYCIN
     Dosage: 1000 MG DAILY
     Route: 042
  11. CALCIUM GLUCONATE. [Concomitant]
     Active Substance: CALCIUM GLUCONATE
     Dosage: 1 G, ONCE
     Route: 042
  12. SODIUM CHLORIDE. [Concomitant]
     Active Substance: SODIUM CHLORIDE
     Dosage: 1000 ML, Q1HR
     Route: 042
  13. ALEVE [Suspect]
     Active Substance: NAPROXEN SODIUM
     Indication: PAIN IN EXTREMITY
  14. HEPARIN [Concomitant]
     Active Substance: HEPARIN SODIUM
     Dosage: 5000 U, BID
     Route: 058

REACTIONS (17)
  - Back pain [None]
  - Leukocytosis [None]
  - Generalised oedema [None]
  - Splenomegaly [None]
  - Dyspnoea [None]
  - Hypertension [None]
  - Atelectasis [None]
  - Renal impairment [Not Recovered/Not Resolved]
  - Drug ineffective [Unknown]
  - Infectious pleural effusion [None]
  - Renal failure acute [Not Recovered/Not Resolved]
  - Bacterial sepsis [None]
  - Pyrexia [None]
  - Tooth infection [None]
  - Musculoskeletal chest pain [None]
  - Tachycardia [None]
  - Systemic inflammatory response syndrome [None]

NARRATIVE: CASE EVENT DATE: 20131120
